FAERS Safety Report 24375441 (Version 1)
Quarter: 2024Q3

REPORT INFORMATION
  Report Type: Spontaneous
  Country: FR (occurrence: FR)
  Receive Date: 20240928
  Receipt Date: 20240928
  Transmission Date: 20241016
  Serious: Yes (Life-Threatening, Hospitalization, Other)
  Sender: AUROBINDO
  Company Number: FR-AstrazenecaRSG-2301-D926XC00001(Prod)000002

PATIENT
  Age: 70 Year
  Sex: Female
  Weight: 75 kg

DRUGS (17)
  1. KETOPROFEN [Suspect]
     Active Substance: KETOPROFEN
     Indication: Back pain
     Dosage: 100 MILLIGRAM, TWO TIMES A DAY
     Route: 065
     Dates: start: 20240802
  2. OMEPRAZOLE [Suspect]
     Active Substance: OMEPRAZOLE
     Indication: Gastrooesophageal reflux disease
     Dosage: 20 MILLIGRAM, ONCE A DAY
     Route: 065
     Dates: start: 20240507
  3. DATOPOTAMAB DERUXTECAN [Suspect]
     Active Substance: DATOPOTAMAB DERUXTECAN
     Indication: Triple negative breast cancer
     Dosage: 6 MILLIGRAM/KILOGRAM, EVERY 3 WEEKS
     Route: 042
     Dates: start: 20240606, end: 20240606
  4. DATOPOTAMAB DERUXTECAN [Suspect]
     Active Substance: DATOPOTAMAB DERUXTECAN
     Dosage: 6 MILLIGRAM/KILOGRAM EVERY 3 WEEKS
     Route: 042
     Dates: start: 20240627, end: 20240627
  5. DATOPOTAMAB DERUXTECAN [Suspect]
     Active Substance: DATOPOTAMAB DERUXTECAN
     Dosage: 6 MILLIGRAM/KILOGRAM EVERY 3 WEEKS
     Route: 042
     Dates: start: 20240718, end: 20240718
  6. DATOPOTAMAB DERUXTECAN [Suspect]
     Active Substance: DATOPOTAMAB DERUXTECAN
     Dosage: 6 MILLIGRAM/KILOGRAM EVERY 3 WEEKS
     Route: 042
     Dates: start: 20240829, end: 20240829
  7. DURVALUMAB [Suspect]
     Active Substance: DURVALUMAB
     Indication: Triple negative breast cancer
     Dosage: 1120 MILLIGRAM, EVERY 3 WEEK
     Route: 042
     Dates: start: 20240606, end: 20240606
  8. DURVALUMAB [Suspect]
     Active Substance: DURVALUMAB
     Dosage: 1120 MILLIGRAM, EVERY 3 WEEK
     Route: 042
     Dates: start: 20240627, end: 20240627
  9. DURVALUMAB [Suspect]
     Active Substance: DURVALUMAB
     Dosage: 1120 MILLIGRAM, EVERY 3 WEEK
     Route: 042
     Dates: start: 20240718, end: 20240718
  10. ACETAMINOPHEN [Concomitant]
     Active Substance: ACETAMINOPHEN
     Indication: Premedication
     Dosage: 1000 MILLIGRAM, EVERY WEEK
     Route: 065
     Dates: start: 20240606
  11. POLARAMINE [Concomitant]
     Active Substance: DEXCHLORPHENIRAMINE MALEATE
     Indication: Premedication
     Dosage: 5 MILLIGRAM, EVERY WEEK
     Route: 065
     Dates: start: 20240606
  12. XANAX [Concomitant]
     Active Substance: ALPRAZOLAM
     Indication: Insomnia
     Dosage: 0.25 MILLIGRAM, ONCE A DAY
     Route: 065
     Dates: start: 202405
  13. SYSTANE (HYPROMELLOSE 2910 (4000 MPA.S)) [Concomitant]
     Active Substance: HYPROMELLOSE 2910 (4000 MPA.S)
     Indication: Dry eye
     Dosage: 1 DOSAGE FORM, DAILY
     Route: 065
     Dates: start: 20240528
  14. TRAMADOL [Concomitant]
     Active Substance: TRAMADOL
     Indication: Back pain
     Dosage: 50 MILLIGRAM, 3 TIMES A DAY
     Route: 065
     Dates: start: 20240709
  15. SOLU-MEDROL [Concomitant]
     Active Substance: METHYLPREDNISOLONE SODIUM SUCCINATE
     Indication: Renal failure
     Dosage: 40 MILLIGRAM, EVERY WEEK
     Route: 065
     Dates: start: 20240606
  16. SOLU-MEDROL [Concomitant]
     Active Substance: METHYLPREDNISOLONE SODIUM SUCCINATE
     Indication: Premedication
  17. EMEND [Concomitant]
     Active Substance: APREPITANT
     Indication: Premedication
     Dosage: 125 MILLIGRAM, EVERY WEEK
     Route: 065
     Dates: start: 20240606

REACTIONS (1)
  - Renal failure [Not Recovered/Not Resolved]

NARRATIVE: CASE EVENT DATE: 20240807
